FAERS Safety Report 7331831-6 (Version None)
Quarter: 2011Q1

REPORT INFORMATION
  Report Type: 
  Country: None (occurrence: None)
  Receive Date: 20110304
  Receipt Date: 20110222
  Transmission Date: 20110831
  Serious: Yes (Hospitalization)
  Sender: FDA-Public Use
  Company Number: FR-MPIJNJ-2011-00788

PATIENT

DRUGS (3)
  1. CAELYX [Suspect]
     Indication: MULTIPLE MYELOMA
     Dosage: 52 UNK, UNK
     Route: 042
  2. VELCADE [Suspect]
     Indication: MULTIPLE MYELOMA
     Dosage: 1.7 MG, CYCLIC
     Route: 042
     Dates: start: 20100519, end: 20110126
  3. DEXAMETHASONE [Suspect]
     Indication: MULTIPLE MYELOMA
     Dosage: 140 MG, UNK
     Route: 048
     Dates: start: 20100519, end: 20110126

REACTIONS (8)
  - CONSTIPATION [None]
  - LUNG DISORDER [None]
  - PARAESTHESIA [None]
  - ASTHENIA [None]
  - VISUAL ACUITY REDUCED [None]
  - SOMNOLENCE [None]
  - GENERAL PHYSICAL HEALTH DETERIORATION [None]
  - BACK PAIN [None]
